FAERS Safety Report 5625474-X (Version None)
Quarter: 2008Q1

REPORT INFORMATION
  Report Type: 
  Country: None (occurrence: None)
  Receive Date: 20080208
  Receipt Date: 20080129
  Transmission Date: 20080703
  Serious: Yes (Hospitalization)
  Sender: FDA-Public Use
  Company Number: CHPA2007US04946

PATIENT
  Age: 69 Year
  Sex: Female

DRUGS (4)
  1. TRANSDERM SCOP [Suspect]
     Indication: PROCEDURAL NAUSEA
     Dosage: 1.5 MG, ONCE/SINGLE, TRANSDERMAL
     Route: 062
     Dates: start: 20061205, end: 20061205
  2. OPIOIDS(NO INGREDIENTS/SUBSTANCES) [Suspect]
     Indication: POSTOPERATIVE ANALGESIA
     Dosage: 5 MG, ONCE/SINGLE, EPIDURAL
     Route: 008
     Dates: start: 20061205, end: 20061205
  3. ANAESTHETICS(NO INGREDIENTS/SUBSTANCES) [Suspect]
     Indication: EPIDURAL ANAESTHESIA
     Dosage: EPIDURAL
     Route: 008
     Dates: start: 20061205
  4. SYNTHROID [Concomitant]

REACTIONS (5)
  - APNOEIC ATTACK [None]
  - DEPRESSED LEVEL OF CONSCIOUSNESS [None]
  - DRUG INTERACTION [None]
  - HYPOXIA [None]
  - SEDATION [None]
